FAERS Safety Report 9731987 (Version 1)
Quarter: 2013Q4

REPORT INFORMATION
  Report Type: Spontaneous
  Country: US (occurrence: None)
  Receive Date: 20131203
  Receipt Date: 20131203
  Transmission Date: 20140711
  Serious: Yes (Death)
  Sender: FDA-Public Use
  Company Number: US-ALKEM-000307

PATIENT
  Age: 38 Year
  Sex: Male

DRUGS (4)
  1. AMLODIPINE [Suspect]
     Dosage: ORAL
     Route: 048
  2. ATENOLOL [Suspect]
     Dosage: ORAL
     Route: 048
  3. IMIPRAMINE [Suspect]
     Dosage: ORAL
     Route: 048
  4. LISINOPRIL [Suspect]
     Dosage: ORAL
     Route: 048

REACTIONS (2)
  - Completed suicide [None]
  - Blood ethanal increased [None]
